FAERS Safety Report 4493287-0 (Version None)
Quarter: 2004Q4

REPORT INFORMATION
  Report Type: 
  Country: None (occurrence: None)
  Receive Date: 20041102
  Receipt Date: 20041019
  Transmission Date: 20050328
  Serious: Yes (Death)
  Sender: FDA-Public Use
  Company Number: USA041080520

PATIENT
  Age: 72 Year
  Sex: Male
  Weight: 94 kg

DRUGS (19)
  1. XIGRIS [Suspect]
     Indication: SEPSIS
     Dosage: 24 UG KG H R
     Dates: start: 20041006
  2. VANCOMYCIN [Concomitant]
  3. COUMADIN [Concomitant]
  4. ALBUTEROL [Concomitant]
  5. COMBIVENT [Concomitant]
  6. AZMACORT [Concomitant]
  7. VICODIN [Concomitant]
  8. XANAX (ALPRAZOLAM DUM) [Concomitant]
  9. MORPHINE [Concomitant]
  10. LEVOPHED (NOREPINEPHRINE) [Concomitant]
  11. DOPAMINE HCL [Concomitant]
  12. PRIMAXIN [Concomitant]
  13. FLAGYL (METRONIDAZOLE BENZOATE) [Concomitant]
  14. AMIODARONE HCL [Concomitant]
  15. CELEXA [Concomitant]
  16. DIGOXIN [Concomitant]
  17. PEPCID [Concomitant]
  18. LASIX [Concomitant]
  19. PREDNISONE [Concomitant]

REACTIONS (1)
  - DEATH [None]
